FAERS Safety Report 25822429 (Version 1)
Quarter: 2025Q3

REPORT INFORMATION
  Report Type: Spontaneous
  Country: EU (occurrence: EU)
  Receive Date: 20250919
  Receipt Date: 20250919
  Transmission Date: 20251020
  Serious: Yes (Other)
  Sender: SANDOZ
  Company Number: EU-002147023-PHHY2009PL37727

PATIENT
  Age: 31 Year
  Sex: Male

DRUGS (12)
  1. METHYLPREDNISOLONE [Suspect]
     Active Substance: METHYLPREDNISOLONE
     Indication: Immunosuppressant drug therapy
     Route: 042
  2. METHYLPREDNISOLONE [Suspect]
     Active Substance: METHYLPREDNISOLONE
     Indication: Kidney transplant rejection
     Route: 065
  3. MYCOPHENOLATE MOFETIL [Suspect]
     Active Substance: MYCOPHENOLATE MOFETIL
     Indication: Renal and pancreas transplant
     Dosage: 750 MG, BID
     Route: 065
  4. MYCOPHENOLATE MOFETIL [Suspect]
     Active Substance: MYCOPHENOLATE MOFETIL
     Indication: Immunosuppressant drug therapy
     Dosage: 250 MG, BID
     Route: 065
  5. PREDNISONE [Suspect]
     Active Substance: PREDNISONE
     Indication: Renal and pancreas transplant
     Dosage: 15 MILLIGRAM DAILY
     Route: 065
  6. PREDNISONE [Suspect]
     Active Substance: PREDNISONE
     Indication: Immunosuppressant drug therapy
     Dosage: 5 MILLIGRAM DAILY
     Route: 065
  7. THYMOCYTE IMMUNE GLOBULIN NOS [Concomitant]
     Active Substance: THYMOCYTE IMMUNE GLOBULIN NOS
     Indication: Kidney transplant rejection
     Route: 065
  8. CYCLOSPORINE [Interacting]
     Active Substance: CYCLOSPORINE
     Indication: Renal transplant
     Dosage: 50 MG, BID
     Route: 065
  9. CYCLOSPORINE [Interacting]
     Active Substance: CYCLOSPORINE
     Indication: Immunosuppressant drug therapy
     Dosage: 100 MG, BID
     Route: 065
  10. CYCLOSPORINE [Interacting]
     Active Substance: CYCLOSPORINE
     Dosage: 200 MG DAILY
     Route: 065
  11. CYCLOSPORINE [Interacting]
     Active Substance: CYCLOSPORINE
     Dosage: 150 MG, BID
     Route: 065
  12. LAMIVUDINE [Interacting]
     Active Substance: LAMIVUDINE
     Indication: Hepatitis B reactivation
     Dosage: 100 MILLIGRAM DAILY
     Route: 065

REACTIONS (17)
  - Blood albumin decreased [Recovered/Resolved]
  - Prothrombin level decreased [Recovered/Resolved]
  - Hepatic function abnormal [Recovered/Resolved]
  - Body temperature increased [Unknown]
  - Urine output decreased [Unknown]
  - Pancreas transplant rejection [Unknown]
  - Immunosuppressant drug level decreased [Unknown]
  - Blood creatinine increased [Recovering/Resolving]
  - Kidney transplant rejection [Recovering/Resolving]
  - Hepatitis B reactivation [Recovered/Resolved]
  - Alanine aminotransferase increased [Recovered/Resolved]
  - Aspartate aminotransferase increased [Recovered/Resolved]
  - Hyperglycaemia [Recovered/Resolved]
  - Drug interaction [Unknown]
  - Drug ineffective [Unknown]
  - Weight increased [Unknown]
  - Alanine aminotransferase decreased [Recovered/Resolved]
